FAERS Safety Report 10177320 (Version 6)
Quarter: 2015Q2

REPORT INFORMATION
  Report Type: Report from Study
  Country: US (occurrence: US)
  Receive Date: 20140516
  Receipt Date: 20150626
  Transmission Date: 20150821
  Serious: Yes (Hospitalization)
  Sender: FDA-Public Use
  Company Number: US-UCBSA-121102

PATIENT
  Age: 51 Year
  Sex: Female
  Weight: 112.5 kg

DRUGS (28)
  1. MOBIC [Concomitant]
     Active Substance: MELOXICAM
  2. DIVALPROEX [Concomitant]
     Active Substance: DIVALPROEX SODIUM
  3. PROAIR HFA [Concomitant]
     Active Substance: ALBUTEROL SULFATE
  4. NEURONTIN [Concomitant]
     Active Substance: GABAPENTIN
     Dosage: UNK
  5. ATENOLOL. [Concomitant]
     Active Substance: ATENOLOL
  6. HYDROCODONE BITARTRATE AND ACETAMINOPHEN [Concomitant]
     Active Substance: ACETAMINOPHEN\HYDROCODONE BITARTRATE
  7. PHENERGAN [Concomitant]
     Active Substance: PROMETHAZINE HYDROCHLORIDE
  8. GABAPENTIN. [Concomitant]
     Active Substance: GABAPENTIN
  9. TIAGABINE [Concomitant]
     Active Substance: TIAGABINE
  10. TIZANIDINE (TIZANIDINE) [Concomitant]
     Active Substance: TIZANIDINE
     Dosage: UNK
  11. SEROQUEL [Concomitant]
     Active Substance: QUETIAPINE FUMARATE
  12. ESTROGEN [Concomitant]
     Active Substance: ESTRONE\SUS SCROFA OVARY
  13. VITAMIN D [Concomitant]
     Active Substance: CHOLECALCIFEROL
  14. PERCOCET [Concomitant]
     Active Substance: ACETAMINOPHEN\OXYCODONE HYDROCHLORIDE
     Dosage: UNK
  15. ALBUTEROL. [Concomitant]
     Active Substance: ALBUTEROL
  16. DIAZEPAM. [Concomitant]
     Active Substance: DIAZEPAM
  17. CLOTRIMAZOLE. [Concomitant]
     Active Substance: CLOTRIMAZOLE
  18. PREMARIN [Concomitant]
     Active Substance: ESTROGENS, CONJUGATED
     Dosage: UNK
  19. SULFA [Concomitant]
     Active Substance: UNSPECIFIED INGREDIENT
  20. BACLOFEN. [Concomitant]
     Active Substance: BACLOFEN
  21. SODIUM CHLORIDE. [Concomitant]
     Active Substance: SODIUM CHLORIDE
  22. FOLIC ACID. [Concomitant]
     Active Substance: FOLIC ACID
  23. CERTOLIZUMAB PEGOL ASP [Suspect]
     Active Substance: CERTOLIZUMAB PEGOL
     Indication: ANKYLOSING SPONDYLITIS
     Dosage: 200 MG, UNK
     Route: 058
     Dates: start: 20110908, end: 20140430
  24. OXYMORPHONE [Concomitant]
     Active Substance: OXYMORPHONE
  25. MULTIVITAMIN [Concomitant]
     Active Substance: VITAMINS
  26. LOTRISONE [Concomitant]
     Active Substance: BETAMETHASONE DIPROPIONATE\CLOTRIMAZOLE
     Dosage: UNK
  27. BENAZEPRIL [Concomitant]
     Active Substance: BENAZEPRIL\BENAZEPRIL HYDROCHLORIDE
     Dosage: UNK
  28. PREDNISONE. [Concomitant]
     Active Substance: PREDNISONE
     Indication: PNEUMONIA
     Dosage: UNK

REACTIONS (3)
  - Pneumonia [Recovering/Resolving]
  - Inappropriate antidiuretic hormone secretion [None]
  - Chronic obstructive pulmonary disease [None]

NARRATIVE: CASE EVENT DATE: 20140428
